FAERS Safety Report 17946350 (Version 2)
Quarter: 2020Q4

REPORT INFORMATION
  Report Type: Spontaneous
  Country: FR (occurrence: FR)
  Receive Date: 20200625
  Receipt Date: 20201203
  Transmission Date: 20210113
  Serious: Yes (Other)
  Sender: FDA-Public Use
  Company Number: NVSC2020FR178489

PATIENT
  Age: 60 Year
  Sex: Female

DRUGS (5)
  1. OFLOXACIN. [Suspect]
     Active Substance: OFLOXACIN
     Dosage: 200 MG, QD
     Route: 065
  2. OFLOXACIN. [Suspect]
     Active Substance: OFLOXACIN
     Indication: PNEUMONIA LEGIONELLA
     Dosage: 200 MG, QD
     Route: 065
  3. ROXITHROMYCIN [Suspect]
     Active Substance: ROXITHROMYCIN
     Indication: PNEUMONIA LEGIONELLA
     Dosage: 150 MG, QD
     Route: 065
  4. OFLOXACIN. [Suspect]
     Active Substance: OFLOXACIN
     Dosage: 200 MG, QD
     Route: 065
  5. AZITHROMYCIN ANHYDROUS. [Suspect]
     Active Substance: AZITHROMYCIN ANHYDROUS
     Indication: PNEUMONIA LEGIONELLA
     Dosage: 500 MG, QD
     Route: 065

REACTIONS (4)
  - Lung abscess [Unknown]
  - Pneumonia legionella [Not Recovered/Not Resolved]
  - Off label use [Unknown]
  - Overdose [Unknown]
